FAERS Safety Report 6839914-1 (Version None)
Quarter: 2010Q2

REPORT INFORMATION
  Report Type: 
  Country: None (occurrence: None)
  Receive Date: 20100629
  Receipt Date: 20100322
  Transmission Date: 20101027
  Serious: Yes (Other)
  Sender: FDA-Public Use
  Company Number: US-WYE-H14315310

PATIENT
  Age: 51 Year
  Sex: Female
  Weight: 83.08 kg

DRUGS (15)
  1. PRISTIQ [Suspect]
     Indication: BIPOLAR DISORDER
     Dosage: UNKNOWN DAILY DOSE
     Dates: start: 20100201, end: 20100301
  2. PRISTIQ [Suspect]
     Indication: MAJOR DEPRESSION
     Dosage: UNKNOWN DAILY DOSE
     Dates: start: 20100201, end: 20100301
  3. SUMATRIPTAN SUCCINATE (IMITREX) [Concomitant]
  4. ASPIRIN [Concomitant]
  5. LORATADINE [Concomitant]
  6. AMBIEN CR [Concomitant]
  7. LAMICTAL [Concomitant]
  8. EFFEXOR [Concomitant]
  9. TOPAMAX [Concomitant]
  10. GEODON [Concomitant]
  11. VALTREX [Concomitant]
  12. NEXIUM [Concomitant]
  13. CALCIUM (CALCIUM) [Concomitant]
  14. VITAMIN D [Concomitant]
  15. LACTULOSE [Concomitant]

REACTIONS (4)
  - CONDITION AGGRAVATED [None]
  - DECREASED APPETITE [None]
  - MIGRAINE [None]
  - NAUSEA [None]
